FAERS Safety Report 16191252 (Version 4)
Quarter: 2019Q2

REPORT INFORMATION
  Report Type: Spontaneous
  Country: US (occurrence: US)
  Receive Date: 20190412
  Receipt Date: 20190510
  Transmission Date: 20190711
  Serious: No
  Sender: FDA-Public Use
  Company Number: PHEH2019US015222

PATIENT
  Sex: Female
  Weight: 55.79 kg

DRUGS (2)
  1. LATANOPROST. [Suspect]
     Active Substance: LATANOPROST
     Indication: GLAUCOMA
     Route: 065
  2. TRAVATAN [Suspect]
     Active Substance: TRAVOPROST
     Indication: PRODUCT USED FOR UNKNOWN INDICATION
     Route: 065

REACTIONS (6)
  - Lip swelling [Unknown]
  - Drug ineffective [Unknown]
  - Swelling [Unknown]
  - Eye irritation [Unknown]
  - Headache [Unknown]
  - Ocular hyperaemia [Unknown]
